FAERS Safety Report 11939306 (Version 1)
Quarter: 2016Q1

REPORT INFORMATION
  Report Type: Spontaneous
  Country: FR (occurrence: FR)
  Receive Date: 20160122
  Receipt Date: 20160122
  Transmission Date: 20160526
  Serious: Yes (Hospitalization)
  Sender: FDA-Public Use
  Company Number: FR-CONCORDIA PHARMACEUTICALS INC.-CO-UX-FR-2016-002

PATIENT
  Age: 75 Year
  Sex: Male

DRUGS (7)
  1. KARDEGIC [Concomitant]
     Active Substance: ASPIRIN LYSINE
  2. INEGY [Concomitant]
     Active Substance: EZETIMIBE\SIMVASTATIN
  3. TADENAN [Concomitant]
     Active Substance: PYGEUM
  4. XATRAL [Suspect]
     Active Substance: ALFUZOSIN
     Indication: BENIGN PROSTATIC HYPERPLASIA
     Route: 048
     Dates: start: 20151112, end: 20151220
  5. BISOPROLOL [Concomitant]
     Active Substance: BISOPROLOL
  6. RAMIPRIL. [Concomitant]
     Active Substance: RAMIPRIL
  7. PARACETAMOL [Concomitant]
     Active Substance: ACETAMINOPHEN

REACTIONS (1)
  - Seizure [Recovered/Resolved]

NARRATIVE: CASE EVENT DATE: 20151220
